FAERS Safety Report 8322823-9 (Version None)
Quarter: 2012Q2

REPORT INFORMATION
  Report Type: 
  Country: None (occurrence: None)
  Receive Date: 20120430
  Receipt Date: 20110808
  Transmission Date: 20120825
  Serious: Yes (Other)
  Sender: FDA-Public Use
  Company Number: US-TEVA-2010004011

PATIENT
  Sex: Female
  Weight: 68.1 kg

DRUGS (3)
  1. PROVIGIL [Suspect]
     Dosage: 200 MILLIGRAM;
     Route: 048
     Dates: end: 20090101
  2. PROVIGIL [Suspect]
     Indication: FATIGUE
     Dosage: 200 MILLIGRAM;
     Route: 048
     Dates: start: 20080101
  3. PROVIGIL [Suspect]
     Dosage: 100 MILLIGRAM;
     Route: 048
     Dates: end: 20090101

REACTIONS (1)
  - TACHYCARDIA [None]
